FAERS Safety Report 11405805 (Version 9)
Quarter: 2020Q1

REPORT INFORMATION
  Report Type: Report from Study
  Country: US (occurrence: US)
  Receive Date: 20150821
  Receipt Date: 20200220
  Transmission Date: 20200409
  Serious: No
  Sender: FDA-Public Use
  Company Number: PHHY2015US070910

PATIENT
  Age: 39 Year
  Sex: Male

DRUGS (1)
  1. GILENYA [Suspect]
     Active Substance: FINGOLIMOD HYDROCHLORIDE
     Indication: MULTIPLE SCLEROSIS
     Dosage: QD
     Route: 048

REACTIONS (12)
  - Decreased appetite [Recovered/Resolved]
  - Sunburn [Unknown]
  - Alanine aminotransferase increased [Recovered/Resolved]
  - Aspartate aminotransferase increased [Unknown]
  - Blood alkaline phosphatase increased [Recovered/Resolved]
  - Fatigue [Recovered/Resolved]
  - Melanocytic naevus [Unknown]
  - Breast mass [Unknown]
  - Skin lesion [Recovered/Resolved]
  - Alanine aminotransferase increased [Unknown]
  - Nausea [Recovered/Resolved]
  - Keratosis pilaris [Unknown]

NARRATIVE: CASE EVENT DATE: 20150223
